FAERS Safety Report 5214980-8 (Version None)
Quarter: 2007Q1

REPORT INFORMATION
  Report Type: 
  Country: None (occurrence: None)
  Receive Date: 20070119
  Receipt Date: 20070119
  Transmission Date: 20070707
  Serious: Yes (Life-Threatening, Hospitalization)
  Sender: FDA-Public Use
  Company Number: None

PATIENT
  Age: 70 Year
  Sex: Female
  Weight: 68 kg

DRUGS (14)
  1. PROTAMINE 250MG/25ML  AMERICAN PHARMACEUTICAL [Suspect]
     Indication: HEPARIN NEUTRALISATION THERAPY
     Dosage: {5 ML ONCE IV
     Route: 042
     Dates: start: 20060830, end: 20060830
  2. NITROGLYCERIN [Concomitant]
  3. ISOSORBIDE DINITRATE [Concomitant]
  4. CALCIUM + D [Concomitant]
  5. SIMVASTATIN [Concomitant]
  6. METOPROLOL TARTRATE [Concomitant]
  7. LISINOPRIL [Concomitant]
  8. ASPIRIN [Concomitant]
  9. SENNA CONCENTRATE [Concomitant]
  10. AMITRIPTYLINE HCL [Concomitant]
  11. REGULAR INSULIN [Concomitant]
  12. NPH INSULIN [Concomitant]
  13. NISOLDIPINE [Concomitant]
  14. RISIDRONATE [Concomitant]

REACTIONS (2)
  - HYPOTENSION [None]
  - PULMONARY HYPERTENSION [None]
